FAERS Safety Report 15412950 (Version 1)
Quarter: 2018Q4

REPORT INFORMATION
  Report Type: Spontaneous
  Country: ES (occurrence: ES)
  Receive Date: 20180921
  Receipt Date: 20180921
  Transmission Date: 20190204
  Serious: Yes (Other)
  Sender: FDA-Public Use
  Company Number: IND-ES-009507513-1809ESP008347

PATIENT
  Age: 41 Year
  Sex: Female

DRUGS (3)
  1. CAPSAICIN. [Concomitant]
     Active Substance: CAPSAICIN
     Dosage: UNK
     Route: 061
  2. EXXIV 60 MG COMPRIMIDOS RECUBIERTOS CON PEL?CULA [Suspect]
     Active Substance: ETORICOXIB
     Route: 048
     Dates: start: 20180714, end: 20180720
  3. CLORAZEPATE DIPOTASSIUM. [Concomitant]
     Active Substance: CLORAZEPATE DIPOTASSIUM
     Dosage: AS NECESSARY
     Route: 048

REACTIONS (2)
  - Oedema peripheral [Recovered/Resolved]
  - Petechiae [Recovered/Resolved]

NARRATIVE: CASE EVENT DATE: 20180720
